FAERS Safety Report 15234784 (Version 1)
Quarter: 2018Q3

REPORT INFORMATION
  Report Type: Spontaneous
  Country: GB (occurrence: GB)
  Receive Date: 20180803
  Receipt Date: 20180803
  Transmission Date: 20181010
  Serious: Yes (Congenital Anomaly)
  Sender: FDA-Public Use
  Company Number: GB-TEVA-2018-GB-934652

PATIENT
  Age: 6 Year
  Sex: Female

DRUGS (1)
  1. SODIUM VALPROATE [Suspect]
     Active Substance: VALPROATE SODIUM
     Indication: EPILEPSY
     Route: 064

REACTIONS (7)
  - Heart disease congenital [Not Recovered/Not Resolved]
  - Fatigue [Unknown]
  - Skull malformation [Unknown]
  - Foetal exposure during pregnancy [Unknown]
  - Lower respiratory tract infection [Not Recovered/Not Resolved]
  - Adverse event [Unknown]
  - Foetal anticonvulsant syndrome [Not Recovered/Not Resolved]
